FAERS Safety Report 8439545-6 (Version None)
Quarter: 2012Q2

REPORT INFORMATION
  Report Type: 
  Country: None (occurrence: None)
  Receive Date: 20120615
  Receipt Date: 20120611
  Transmission Date: 20120825
  Serious: Yes (Other)
  Sender: FDA-Public Use
  Company Number: US-AMGEN-USASP2011061698

PATIENT
  Age: 60 Year
  Sex: Male
  Weight: 83.5 kg

DRUGS (21)
  1. LIDOCAINE [Concomitant]
  2. DOCUSATE [Concomitant]
  3. IRON [Concomitant]
  4. EPOGEN [Suspect]
     Indication: RENAL FAILURE CHRONIC
     Dosage: UNK
  5. NORVASC [Concomitant]
  6. VASOTEC [Concomitant]
  7. PRAVASTATIN [Concomitant]
  8. OMEPRAZOLE [Concomitant]
  9. HEPARIN [Concomitant]
  10. SENSIPAR [Suspect]
     Indication: HYPERPARATHYROIDISM SECONDARY
     Dosage: 30 MG, QD
     Route: 048
     Dates: start: 20090821
  11. BRINZOLAMIDE [Concomitant]
  12. PHENERGAN [Concomitant]
  13. LEVOTHYROXINE SODIUM [Concomitant]
  14. METOPROLOL SUCCINATE [Concomitant]
  15. NEPHROVITE [Concomitant]
  16. SEROQUEL [Concomitant]
  17. LEUCOVORIN CALCIUM [Concomitant]
  18. HECTOROL [Concomitant]
  19. EPOGEN [Suspect]
  20. RENVELA [Concomitant]
  21. NITROGLYCERIN [Concomitant]

REACTIONS (6)
  - PHARYNGEAL OEDEMA [None]
  - BLOOD CALCIUM INCREASED [None]
  - BLOOD PARATHYROID HORMONE INCREASED [None]
  - ANAPHYLACTIC REACTION [None]
  - DYSPNOEA [None]
  - SWOLLEN TONGUE [None]
